FAERS Safety Report 7929922-1 (Version None)
Quarter: 2011Q4

REPORT INFORMATION
  Report Type: 
  Country: None (occurrence: None)
  Receive Date: 20111121
  Receipt Date: 20111118
  Transmission Date: 20120403
  Serious: Yes (Disabling, Other)
  Sender: FDA-Public Use
  Company Number: JP-PFIZER INC-2011218869

PATIENT
  Age: 81 Year
  Sex: Female
  Weight: 40 kg

DRUGS (10)
  1. LEVOTHYROXINE SODIUM [Concomitant]
     Indication: POSTOPERATIVE CARE
  2. LANSOPRAZOLE [Concomitant]
  3. LYRICA [Suspect]
     Indication: OSTEOARTHRITIS
     Dosage: 75 MG, SINGLE
     Route: 048
     Dates: start: 20110825, end: 20110825
  4. VOLTAREN-XR [Concomitant]
     Indication: ARTHRALGIA
     Dosage: 1 TABLET, 2X/DAY
     Dates: start: 20100708
  5. MARZULENE ES [Concomitant]
     Indication: ARTHRALGIA
     Dosage: 1 TABLET, 3X/DAY
     Dates: start: 20100708
  6. DEPAS [Concomitant]
  7. GLAKAY [Concomitant]
  8. NORVASC [Concomitant]
  9. MOBIC [Concomitant]
     Indication: ARTHRALGIA
     Dosage: 1 TABLET, 2X/DAY
     Dates: start: 20100708
  10. HYALURONATE SODIUM [Concomitant]
     Indication: ARTHRALGIA
     Dosage: UNK
     Route: 014

REACTIONS (2)
  - ASTHMA [None]
  - ASTHENIA [None]
